FAERS Safety Report 13121816 (Version 2)
Quarter: 2017Q2

REPORT INFORMATION
  Report Type: Spontaneous
  Country: JP (occurrence: JP)
  Receive Date: 20170117
  Receipt Date: 20170502
  Transmission Date: 20170830
  Serious: Yes (Other)
  Sender: FDA-Public Use
  Company Number: JP-PFIZER INC-2017018157

PATIENT
  Age: 63 Year
  Sex: Male
  Weight: 51.9 kg

DRUGS (4)
  1. POLAPREZINC [Concomitant]
     Active Substance: POLAPREZINC
  2. RACOL [Concomitant]
     Active Substance: AMINO ACIDS\DEXTROSE\ELECTROLYTES NOS
  3. ASPARA K [Concomitant]
     Active Substance: POTASSIUM ASPARTATE
  4. GABAPEN [Suspect]
     Active Substance: GABAPENTIN
     Dosage: UNK
     Route: 048

REACTIONS (1)
  - Bradycardia [Recovered/Resolved]

NARRATIVE: CASE EVENT DATE: 20170113
